FAERS Safety Report 23513772 (Version 1)
Quarter: 2024Q1

REPORT INFORMATION
  Report Type: Spontaneous
  Country: US (occurrence: US)
  Receive Date: 20240212
  Receipt Date: 20240212
  Transmission Date: 20240409
  Serious: No
  Sender: FDA-Public Use
  Company Number: US-GILEAD-2024-0661640

PATIENT
  Age: 40 Year
  Sex: Male

DRUGS (6)
  1. DESCOVY [Suspect]
     Active Substance: EMTRICITABINE\TENOFOVIR ALAFENAMIDE FUMARATE
     Indication: Prophylaxis against HIV infection
     Dosage: UNK
     Route: 065
     Dates: start: 2021
  2. ANAFRANIL [Concomitant]
     Active Substance: CLOMIPRAMINE HYDROCHLORIDE
  3. FINASTERIDE [Concomitant]
     Active Substance: FINASTERIDE
  4. ACETYLCYSTEINE [Concomitant]
     Active Substance: ACETYLCYSTEINE
  5. CHOLECALCIFEROL [Concomitant]
     Active Substance: CHOLECALCIFEROL
  6. FISH OIL [Concomitant]
     Active Substance: FISH OIL

REACTIONS (1)
  - Paraesthesia [Unknown]

NARRATIVE: CASE EVENT DATE: 20240208
